FAERS Safety Report 14081648 (Version 1)
Quarter: 2017Q4

REPORT INFORMATION
  Report Type: Spontaneous
  Country: US (occurrence: None)
  Receive Date: 20171013
  Receipt Date: 20171013
  Transmission Date: 20180321
  Serious: Yes (Hospitalization)
  Sender: FDA-Public Use
  Company Number: None

PATIENT
  Age: 16 Year
  Sex: Male
  Weight: 88.1 kg

DRUGS (6)
  1. ONCASPAR [Suspect]
     Active Substance: PEGASPARGASE
     Dosage: 10175 UNIT
     Dates: end: 20170913
  2. VINCRISTINE SULFATE. [Concomitant]
     Active Substance: VINCRISTINE SULFATE
     Dates: end: 20170920
  3. CYCLOPHOSPHAMIDE. [Suspect]
     Active Substance: CYCLOPHOSPHAMIDE
     Dates: end: 20170830
  4. CYTARABINE. [Suspect]
     Active Substance: CYTARABINE
     Dates: end: 20170906
  5. METHOTREXATE. [Suspect]
     Active Substance: METHOTREXATE
     Dates: end: 20170823
  6. MERCAPTOPURINE. [Suspect]
     Active Substance: MERCAPTOPURINE
     Dates: end: 20170915

REACTIONS (8)
  - Bacteraemia [None]
  - Bacterial infection [None]
  - Febrile neutropenia [None]
  - Abdominal abscess [None]
  - Platelet count decreased [None]
  - Tachycardia [None]
  - Klebsiella test positive [None]
  - Haemoglobin decreased [None]

NARRATIVE: CASE EVENT DATE: 20170926
